FAERS Safety Report 18732197 (Version 2)
Quarter: 2021Q2

REPORT INFORMATION
  Report Type: Spontaneous
  Country: CA (occurrence: CA)
  Receive Date: 20210112
  Receipt Date: 20210506
  Transmission Date: 20210717
  Serious: Yes (Hospitalization)
  Sender: FDA-Public Use
  Company Number: CA-SA-2021SA001607

PATIENT
  Age: 57 Year
  Sex: Female
  Weight: 50 kg

DRUGS (10)
  1. NAPROXEN. [Concomitant]
     Active Substance: NAPROXEN
     Dosage: 375 MG, BID
  2. DOCETAXEL. [Suspect]
     Active Substance: DOCETAXEL
     Indication: LUNG NEOPLASM
     Dosage: 234 MG
     Route: 042
     Dates: start: 20200406, end: 20200411
  3. LOPERAMIDE [Concomitant]
     Active Substance: LOPERAMIDE
     Dosage: AS INDICATED BY THE SUPPLIER
  4. SYNTHROID [Concomitant]
     Active Substance: LEVOTHYROXINE SODIUM
     Dosage: 75 UG, QD
  5. PREDNISONE. [Concomitant]
     Active Substance: PREDNISONE
     Dosage: 25 MG, QD
  6. TYLENOL ARTHRITIS PAIN [Concomitant]
     Active Substance: ACETAMINOPHEN
     Dosage: 2 DF, TID
  7. SENOKOT?S [Concomitant]
     Active Substance: DOCUSATE SODIUM\SENNOSIDES
     Dosage: 2 DF, HS
  8. DILAUDID [Concomitant]
     Active Substance: HYDROMORPHONE HYDROCHLORIDE
     Dosage: FORMULATION: LIQUID INTRAMUSCULAR, 2 MG 1? TABLET EVERY 4H PRN (TAKE IT REGULARLY)
     Route: 030
  9. HYDROMORPH CONTIN [Concomitant]
     Active Substance: HYDROMORPHONE
     Dosage: 12 MG, BID
  10. LYRICA [Concomitant]
     Active Substance: PREGABALIN
     Dosage: 50 MG, TID

REACTIONS (3)
  - Bacterial test negative [Recovered/Resolved]
  - Gastrointestinal pathogen panel [Recovered/Resolved]
  - Diarrhoea [Recovered/Resolved]

NARRATIVE: CASE EVENT DATE: 20200411
